FAERS Safety Report 8490156-6 (Version None)
Quarter: 2012Q3

REPORT INFORMATION
  Report Type: 
  Country: None (occurrence: None)
  Receive Date: 20120705
  Receipt Date: 20120627
  Transmission Date: 20120928
  Serious: Yes (Other)
  Sender: FDA-Public Use
  Company Number: JP-JNJFOC-20120700996

PATIENT
  Age: 83 Year
  Sex: Male

DRUGS (6)
  1. TRAMADOL HCL [Suspect]
     Dosage: 1 PER 1 DAY
     Route: 048
     Dates: start: 20111216, end: 20111226
  2. LYRICA [Suspect]
     Route: 048
     Dates: start: 20111227, end: 20120625
  3. TRAMADOL HCL [Suspect]
     Dosage: 1 PER 1 DAY
     Route: 048
     Dates: start: 20120625, end: 20120627
  4. TRAMADOL HCL [Suspect]
     Indication: PAIN
     Dosage: 1 PER 1 DAY
     Route: 048
     Dates: start: 20111227, end: 20120624
  5. LYRICA [Suspect]
     Indication: PAIN
     Dosage: 1 PER 1 DAY (25 MG IN THE MORNING AND 75 MG IN THE EVENING)
     Route: 048
     Dates: start: 20110701, end: 20111226
  6. NEUROTROPIN [Concomitant]
     Indication: PAIN
     Route: 050

REACTIONS (2)
  - DELIRIUM [None]
  - DIZZINESS [None]
